FAERS Safety Report 5295537-X (Version None)
Quarter: 2007Q1

REPORT INFORMATION
  Report Type: 
  Country: None (occurrence: None)
  Receive Date: 20070201
  Receipt Date: 20061013
  Transmission Date: 20070707
  Serious: No
  Sender: FDA-Public Use
  Company Number: 2006PV023330

PATIENT
  Age: 68 Year
  Sex: Male

DRUGS (5)
  1. BYETTA [Suspect]
     Indication: DIABETES MELLITUS NON-INSULIN-DEPENDENT
     Dosage: SC
     Route: 058
     Dates: start: 20060601, end: 20060601
  2. INSULIN [Concomitant]
  3. PROGRAF [Concomitant]
  4. IMMUNOSUPPRESSION DRUGS NOS [Concomitant]
  5. .. [Concomitant]

REACTIONS (3)
  - BLOOD GLUCOSE INCREASED [None]
  - DRUG INEFFECTIVE [None]
  - DRUG INTERACTION INHIBITION [None]
